FAERS Safety Report 8482349-9 (Version None)
Quarter: 2012Q3

REPORT INFORMATION
  Report Type: 
  Country: None (occurrence: None)
  Receive Date: 20120702
  Receipt Date: 20120621
  Transmission Date: 20120928
  Serious: Yes (Disabling, Other)
  Sender: FDA-Public Use
  Company Number: US-ASTRAZENECA-2012SE41820

PATIENT
  Age: 58 Year
  Sex: Female
  Weight: 77.1 kg

DRUGS (11)
  1. EFFEXOR XR [Suspect]
     Indication: CHRONIC FATIGUE SYNDROME
     Route: 048
     Dates: start: 19990101, end: 19990101
  2. NORCO [Concomitant]
     Indication: PAIN
     Dosage: 20/650 MG, THREE TIME A DAY
  3. KEFLEX [Concomitant]
     Indication: INFECTION
  4. DOXEPIN [Concomitant]
     Indication: DEPRESSION
  5. EFFEXOR XR [Suspect]
     Route: 048
     Dates: start: 19990101
  6. ADDERALL 5 [Concomitant]
     Indication: CHRONIC FATIGUE SYNDROME
  7. PRILOSEC [Suspect]
     Indication: GASTROOESOPHAGEAL REFLUX DISEASE
     Route: 048
  8. EFFEXOR XR [Suspect]
     Indication: DEPRESSION
     Route: 048
     Dates: start: 19990101, end: 19990101
  9. EFFEXOR XR [Suspect]
     Route: 048
     Dates: start: 19990101
  10. MORPHINE [Concomitant]
     Indication: PAIN
  11. MORPHINE [Concomitant]

REACTIONS (4)
  - BLINDNESS [None]
  - HAEMATEMESIS [None]
  - RETINAL NEOPLASM [None]
  - VOMITING [None]
